FAERS Safety Report 7974049-6 (Version None)
Quarter: 2011Q4

REPORT INFORMATION
  Report Type: 
  Country: None (occurrence: None)
  Receive Date: 20111213
  Receipt Date: 20111202
  Transmission Date: 20120403
  Serious: Yes (Other)
  Sender: FDA-Public Use
  Company Number: MK-GLAXOSMITHKLINE-B0768131A

PATIENT
  Age: 75 Year
  Sex: Male

DRUGS (7)
  1. TESTOSTERONE [Concomitant]
     Indication: PITUITARY TUMOUR BENIGN
  2. KORNAM [Concomitant]
  3. VERAPAMIL [Concomitant]
  4. AVODART [Suspect]
     Indication: BENIGN PROSTATIC HYPERPLASIA
     Dosage: .5MG PER DAY
     Route: 065
  5. TAMSULOSIN HCL [Concomitant]
  6. LOSARTAN POTASSIUM [Concomitant]
  7. BISOPROLOL FUMARATE [Suspect]
     Indication: PRODUCT USED FOR UNKNOWN INDICATION
     Route: 065

REACTIONS (2)
  - ASPHYXIA [None]
  - HYPERTENSION [None]
